FAERS Safety Report 5019901-9 (Version None)
Quarter: 2006Q2

REPORT INFORMATION
  Report Type: 
  Country: None (occurrence: None)
  Receive Date: 20060605
  Receipt Date: 20060605
  Transmission Date: 20061013
  Serious: Yes (Hospitalization)
  Sender: FDA-Public Use
  Company Number: None

PATIENT
  Age: 47 Year
  Sex: Female
  Weight: 94.3482 kg

DRUGS (10)
  1. RAMIPRIL [Suspect]
     Dosage: 10 MG DAILY PO
     Route: 048
     Dates: start: 20060420, end: 20060527
  2. SOMAVERT [Concomitant]
  3. ZEGERID [Concomitant]
  4. LABETALOL [Concomitant]
  5. ALTACE [Concomitant]
  6. SULAR [Concomitant]
  7. DEMADEX [Concomitant]
  8. AMARYL [Concomitant]
  9. SYNTHROID [Concomitant]
  10. CENESTIN [Concomitant]

REACTIONS (5)
  - ANGIONEUROTIC OEDEMA [None]
  - BLOOD PRESSURE INCREASED [None]
  - LARYNGEAL OEDEMA [None]
  - LOCAL SWELLING [None]
  - SALIVARY GLAND ENLARGEMENT [None]
